FAERS Safety Report 9379853 (Version 2)
Quarter: 2013Q3

REPORT INFORMATION
  Report Type: Report from Study
  Country: DE (occurrence: DE)
  Receive Date: 20130702
  Receipt Date: 20130704
  Transmission Date: 20140515
  Serious: Yes (Death, Hospitalization)
  Sender: FDA-Public Use
  Company Number: DE-PFIZER INC-2013129239

PATIENT
  Age: 74 Year
  Sex: Female
  Weight: 47 kg

DRUGS (8)
  1. TEMSIROLIMUS [Suspect]
     Indication: B-CELL LYMPHOMA
     Dosage: 25 MG, WEEKLY
     Route: 042
     Dates: start: 20091029, end: 20091119
  2. TEMSIROLIMUS [Suspect]
     Dosage: 50 MG, WEEKLY
     Route: 042
     Dates: start: 20091127, end: 20091203
  3. TEMSIROLIMUS [Suspect]
     Dosage: 75 MG, WEEKLY
     Route: 042
     Dates: start: 20091217
  4. TEMSIROLIMUS [Suspect]
     Dosage: 75 MG, CYCLIC (EVERY 2 WEEKS)
     Route: 042
     Dates: start: 20120522, end: 20130328
  5. ACICLOVIR [Suspect]
     Indication: PROPHYLAXIS
     Dosage: 1600 MG, (2X 800 MG), 1X/DAY
     Route: 048
     Dates: start: 20080812, end: 20130328
  6. PROTELOS [Suspect]
     Indication: OSTEOPOROSIS
     Dosage: 2 G, 1X/DAY
     Route: 048
     Dates: start: 20071023, end: 20130328
  7. PROTELOS [Suspect]
     Indication: HYPERTONIC BLADDER
  8. TROSPI [Suspect]
     Dosage: 30 G, 1X/DAY
     Route: 048
     Dates: start: 20101109, end: 20130328

REACTIONS (4)
  - General physical health deterioration [Fatal]
  - Cardiac failure [Recovering/Resolving]
  - Acute pulmonary oedema [Recovering/Resolving]
  - Hypertensive crisis [Recovering/Resolving]
